FAERS Safety Report 19930537 (Version 1)
Quarter: 2021Q4

REPORT INFORMATION
  Report Type: Spontaneous
  Country: US (occurrence: US)
  Receive Date: 20211007
  Receipt Date: 20211007
  Transmission Date: 20220303
  Serious: Yes (Hospitalization, Other)
  Sender: FDA-Public Use
  Company Number: US-BAYER-2021A222743

PATIENT
  Age: 54 Year
  Sex: Female

DRUGS (6)
  1. STIVARGA [Suspect]
     Active Substance: REGORAFENIB
  2. LONSURF [Suspect]
     Active Substance: TIPIRACIL HYDROCHLORIDE\TRIFLURIDINE
     Indication: Rectal cancer
     Dosage: 60 MG, BID
     Route: 048
     Dates: start: 2021
  3. LONSURF [Suspect]
     Active Substance: TIPIRACIL HYDROCHLORIDE\TRIFLURIDINE
     Indication: Colon cancer
  4. LONSURF [Suspect]
     Active Substance: TIPIRACIL HYDROCHLORIDE\TRIFLURIDINE
     Indication: Metastases to lymph nodes
  5. LONSURF [Suspect]
     Active Substance: TIPIRACIL HYDROCHLORIDE\TRIFLURIDINE
     Indication: Metastases to liver
  6. OMEPRAZOLE [Suspect]
     Active Substance: OMEPRAZOLE

REACTIONS (14)
  - Disease progression [None]
  - Blood pressure inadequately controlled [Unknown]
  - Sepsis [None]
  - Fatigue [None]
  - Pyrexia [Unknown]
  - Pulmonary thrombosis [Unknown]
  - Hypothyroidism [None]
  - Carcinoembryonic antigen increased [None]
  - Blister [None]
  - Weight decreased [Unknown]
  - Flatulence [Unknown]
  - Insomnia [Unknown]
  - Feeding disorder [Unknown]
  - Abdominal pain upper [Unknown]

NARRATIVE: CASE EVENT DATE: 20210101
